FAERS Safety Report 4617833-9 (Version None)
Quarter: 2005Q1

REPORT INFORMATION
  Report Type: 
  Country: None (occurrence: None)
  Receive Date: 20050322
  Receipt Date: 20050303
  Transmission Date: 20050727
  Serious: Yes (Death, Hospitalization, Other)
  Sender: FDA-Public Use
  Company Number: 200411193BVD

PATIENT
  Age: 75 Year
  Sex: Female
  Weight: 76 kg

DRUGS (8)
  1. TRASYLOL [Suspect]
     Indication: SURGERY
     Dosage: 3000 KIU, TOTAL DAILY, INTRAVENOUS
     Route: 042
     Dates: start: 20040526
  2. HEPARIN [Concomitant]
  3. BETA-BLOCKER [Concomitant]
  4. ANTI-LIPIDE [Concomitant]
  5. ASPIRIN [Concomitant]
  6. DIURETICS [Concomitant]
  7. VASODILATORS [Concomitant]
  8. ACE INHIBITOR [Concomitant]

REACTIONS (2)
  - CEREBROVASCULAR ACCIDENT [None]
  - DISEASE RECURRENCE [None]
